FAERS Safety Report 10756445 (Version 2)
Quarter: 2015Q1

REPORT INFORMATION
  Report Type: Spontaneous
  Country: NL (occurrence: NL)
  Receive Date: 20150202
  Receipt Date: 20150219
  Transmission Date: 20150721
  Serious: Yes (Hospitalization, Other)
  Sender: FDA-Public Use
  Company Number: NL-ALEXION PHARMACEUTICALS INC.-A201500280

PATIENT

DRUGS (1)
  1. SOLIRIS [Suspect]
     Active Substance: ECULIZUMAB
     Indication: PAROXYSMAL NOCTURNAL HAEMOGLOBINURIA
     Dosage: 900 MG, Q2W (Q12-16D)
     Route: 042
     Dates: start: 20101018

REACTIONS (2)
  - Abdominal pain upper [Unknown]
  - Cholecystitis [Unknown]

NARRATIVE: CASE EVENT DATE: 20150124
